FAERS Safety Report 9245966 (Version 2)
Quarter: 2013Q2

REPORT INFORMATION
  Report Type: Spontaneous
  Country: US (occurrence: US)
  Receive Date: 20130422
  Receipt Date: 20130507
  Transmission Date: 20140414
  Serious: No
  Sender: FDA-Public Use
  Company Number: US-009507513-1304USA007453

PATIENT
  Age: 86 Year
  Sex: Female
  Weight: 65.76 kg

DRUGS (4)
  1. CLARITIN [Suspect]
     Indication: SNEEZING
     Dosage: 10 MG, UNKNOWN
     Route: 048
     Dates: start: 20130327
  2. CLARITIN [Suspect]
     Indication: LACRIMATION INCREASED
  3. CLARITIN [Suspect]
     Indication: RHINORRHOEA
  4. CLARITIN [Suspect]
     Indication: MEDICAL OBSERVATION

REACTIONS (1)
  - Drug ineffective [Unknown]
